FAERS Safety Report 14535114 (Version 2)
Quarter: 2018Q2

REPORT INFORMATION
  Report Type: Report from Study
  Country: CN (occurrence: CN)
  Receive Date: 20180215
  Receipt Date: 20180504
  Transmission Date: 20180711
  Serious: Yes (Hospitalization)
  Sender: FDA-Public Use
  Company Number: CN-JNJFOC-20180218714

PATIENT
  Age: 75 Year
  Sex: Female
  Weight: 75 kg

DRUGS (10)
  1. XARELTO [Suspect]
     Active Substance: RIVAROXABAN
     Indication: CEREBROVASCULAR ACCIDENT
     Route: 048
     Dates: start: 20171207
  2. GINKGO BILOBA EXTRACT [Concomitant]
     Active Substance: GINKGO
     Indication: CEREBROVASCULAR DISORDER
     Route: 042
     Dates: start: 20180102, end: 20180103
  3. XARELTO [Suspect]
     Active Substance: RIVAROXABAN
     Indication: THROMBOSIS PROPHYLAXIS
     Route: 048
     Dates: start: 20171207
  4. GASTRODINA [Concomitant]
     Indication: CEREBROVASCULAR DISORDER
     Route: 042
     Dates: start: 20180103, end: 20180111
  5. ALPROSTADIL. [Concomitant]
     Active Substance: ALPROSTADIL
     Indication: CEREBROVASCULAR DISORDER
     Route: 065
     Dates: start: 20180102, end: 20180103
  6. OXIRACETAM [Concomitant]
     Active Substance: OXIRACETAM
     Indication: CEREBROVASCULAR DISORDER
     Route: 042
     Dates: start: 20180103, end: 20180111
  7. PRUNUS ARMENIACA [Concomitant]
     Indication: CEREBROVASCULAR DISORDER
     Route: 048
     Dates: start: 20180117
  8. XARELTO [Suspect]
     Active Substance: RIVAROXABAN
     Indication: ATRIAL FIBRILLATION
     Route: 048
     Dates: start: 20171207
  9. XARELTO [Suspect]
     Active Substance: RIVAROXABAN
     Indication: CEREBROVASCULAR ACCIDENT PROPHYLAXIS
     Route: 048
     Dates: start: 20171207
  10. FLURBIPROFEN. [Concomitant]
     Active Substance: FLURBIPROFEN
     Indication: DRUG THERAPY
     Route: 061
     Dates: start: 20180108

REACTIONS (1)
  - Vertigo [Recovered/Resolved]

NARRATIVE: CASE EVENT DATE: 20180102
